FAERS Safety Report 25776862 (Version 1)
Quarter: 2025Q3

REPORT INFORMATION
  Report Type: Spontaneous
  Country: US (occurrence: US)
  Receive Date: 20250909
  Receipt Date: 20250909
  Transmission Date: 20251021
  Serious: No
  Sender: DOMPE FARMACEUTICI
  Company Number: US-FARMAPROD-202503-0988

PATIENT
  Sex: Female

DRUGS (14)
  1. OXERVATE [Suspect]
     Active Substance: CENEGERMIN-BKBJ
     Indication: Neurotrophic keratopathy
     Route: 047
     Dates: start: 20250314
  2. ZYRTEC [Concomitant]
     Active Substance: CETIRIZINE HYDROCHLORIDE
  3. LIDODERM [Concomitant]
     Active Substance: LIDOCAINE
  4. ONDANSETRON HYDROCHLORIDE [Concomitant]
     Active Substance: ONDANSETRON HYDROCHLORIDE
  5. POTASSIUM CHLORIDE [Concomitant]
     Active Substance: POTASSIUM CHLORIDE
  6. HYDROXYCHLOROQUINE SULFATE [Concomitant]
     Active Substance: HYDROXYCHLOROQUINE SULFATE
  7. LEVOTHYROXINE SODIUM [Concomitant]
     Active Substance: LEVOTHYROXINE SODIUM
  8. LEFLUNOMIDE [Concomitant]
     Active Substance: LEFLUNOMIDE
  9. TOPIRAMATE [Concomitant]
     Active Substance: TOPIRAMATE
  10. PRAMIPEXOLE  DIHYDROCHLORIDE [Concomitant]
  11. PROTONIX [Concomitant]
     Active Substance: PANTOPRAZOLE SODIUM
  12. TRAZODONE HCL [Concomitant]
     Active Substance: TRAZODONE HYDROCHLORIDE
  13. GABAPENTIN [Concomitant]
     Active Substance: GABAPENTIN
  14. PREGABALIN [Concomitant]
     Active Substance: PREGABALIN

REACTIONS (8)
  - Eye irritation [Unknown]
  - Photophobia [Unknown]
  - Eye pain [Unknown]
  - Blepharospasm [Unknown]
  - Ocular hyperaemia [Unknown]
  - Ocular discomfort [Unknown]
  - Eye discharge [Unknown]
  - Impaired driving ability [Unknown]
